FAERS Safety Report 8165835-0 (Version None)
Quarter: 2012Q1

REPORT INFORMATION
  Report Type: 
  Country: None (occurrence: None)
  Receive Date: 20120103
  Receipt Date: 20111020
  Transmission Date: 20120608
  Serious: No
  Sender: FDA-Public Use
  Company Number: AE-2011-002511

PATIENT
  Age: 63 Year
  Sex: Male
  Weight: 82.5547 kg

DRUGS (7)
  1. ASPIRIN [Concomitant]
  2. DIOVAN HCT (CO-DIOVAN) [Concomitant]
  3. RIBAVIRIN [Concomitant]
  4. INCIVEK [Suspect]
     Dosage: 2250 MG (750 MG,3 IN 1 D),ORAL
     Route: 048
     Dates: start: 20111007
  5. PEGASYS [Concomitant]
  6. GLUCOSAMINE (GLUCOSAMINE) [Concomitant]
  7. CENTRUM SILVER (CENTRUM SILVER) [Concomitant]

REACTIONS (4)
  - HAEMORRHOIDS [None]
  - INAPPROPRIATE SCHEDULE OF DRUG ADMINISTRATION [None]
  - ANORECTAL DISCOMFORT [None]
  - RASH [None]
